FAERS Safety Report 6508145-7 (Version None)
Quarter: 2009Q4

REPORT INFORMATION
  Report Type: 
  Country: None (occurrence: None)
  Receive Date: 20091221
  Receipt Date: 20091210
  Transmission Date: 20100525
  Serious: Yes (Death, Hospitalization, Disabling, Other)
  Sender: FDA-Public Use
  Company Number: JP-PFIZER INC-2008087703

PATIENT
  Age: 64 Year

DRUGS (14)
  1. AZULFIDINE [Suspect]
     Indication: RHEUMATOID ARTHRITIS
     Dosage: UNK
     Route: 048
     Dates: start: 19981016, end: 20050831
  2. RIMATIL [Suspect]
     Indication: RHEUMATOID ARTHRITIS
     Dosage: UNK
     Route: 048
     Dates: start: 19960326, end: 20050707
  3. SHIOSOL [Suspect]
     Indication: RHEUMATOID ARTHRITIS
     Dosage: 5 MG, WEEKLY
     Dates: start: 19960326, end: 20020205
  4. DICLOFENAC SODIUM [Suspect]
     Indication: RHEUMATOID ARTHRITIS
     Dosage: 75 MG, 1X/DAY
     Route: 048
     Dates: start: 19960326, end: 20010928
  5. PREDNISOLONE [Concomitant]
     Dosage: 20 MG, 1X/DAY
     Route: 048
     Dates: start: 19980701
  6. TAKEPRON [Concomitant]
     Dosage: UNK
     Route: 048
  7. LASIX [Concomitant]
     Dosage: UNK
     Route: 048
  8. ALDACTONE [Concomitant]
     Dosage: UNK
     Route: 048
  9. SLOW-K [Concomitant]
     Dosage: UNK
     Route: 048
  10. LIPITOR [Concomitant]
     Dosage: UNK
     Route: 048
  11. MUCODYNE [Concomitant]
     Dosage: UNK
     Route: 048
  12. MUCOSOLVAN [Concomitant]
     Dosage: UNK
     Route: 048
  13. CRAVIT [Concomitant]
     Dosage: UNK
     Route: 048
  14. BAKTAR [Concomitant]
     Dosage: UNK
     Route: 048
     Dates: start: 20080304

REACTIONS (8)
  - DEEP VEIN THROMBOSIS [None]
  - GASTRITIS [None]
  - INTERSTITIAL LUNG DISEASE [None]
  - MYELODYSPLASTIC SYNDROME [None]
  - OEDEMA PERIPHERAL [None]
  - PULMONARY FIBROSIS [None]
  - REFLUX OESOPHAGITIS [None]
  - SMALL INTESTINE CARCINOMA [None]
